FAERS Safety Report 6822130-7 (Version None)
Quarter: 2010Q3

REPORT INFORMATION
  Report Type: 
  Country: None (occurrence: None)
  Receive Date: 20100708
  Receipt Date: 20100629
  Transmission Date: 20110219
  Serious: Yes (Congenital Anomaly)
  Sender: FDA-Public Use
  Company Number: GB-ASTRAZENECA-2010SE30920

PATIENT
  Age: 0 Week

DRUGS (1)
  1. SEROQUEL [Suspect]
     Indication: MOOD SWINGS
     Route: 064
     Dates: start: 20091201

REACTIONS (1)
  - LIMB DEFORMITY [None]
